FAERS Safety Report 10080147 (Version 1)
Quarter: 2014Q2

REPORT INFORMATION
  Report Type: Spontaneous
  Country: IT (occurrence: IT)
  Receive Date: 20140415
  Receipt Date: 20140415
  Transmission Date: 20141212
  Serious: Yes (Hospitalization)
  Sender: FDA-Public Use
  Company Number: IT-ACTAVIS-2013-25330

PATIENT
  Age: 51 Year
  Sex: Male

DRUGS (3)
  1. DOCETAXEL ACTAVIS [Suspect]
     Indication: GASTRIC CANCER
     Dosage: 150 MG, UNK
     Route: 042
     Dates: start: 20130828, end: 20130828
  2. LANSOX [Concomitant]
     Indication: PRODUCT USED FOR UNKNOWN INDICATION
     Dosage: 30 MG, UNK
     Route: 065
  3. COUMADIN                           /00014802/ [Concomitant]
     Indication: PRODUCT USED FOR UNKNOWN INDICATION
     Dosage: UNK, UNKNOWN
     Route: 065

REACTIONS (3)
  - Neutropenia [Recovered/Resolved]
  - Pyrexia [Recovered/Resolved]
  - Diverticulitis [Recovered/Resolved]
